FAERS Safety Report 24736506 (Version 1)
Quarter: 2024Q4

REPORT INFORMATION
  Report Type: Spontaneous
  Country: GB (occurrence: GB)
  Receive Date: 20241216
  Receipt Date: 20241216
  Transmission Date: 20250114
  Serious: Yes (Disabling)
  Sender: TEVA
  Company Number: None

PATIENT
  Age: 69 Year
  Sex: Female

DRUGS (2)
  1. TAMSULOSIN [Suspect]
     Active Substance: TAMSULOSIN
     Indication: Nephrolithiasis
     Dosage: 400 MICROGRAM ONCE A DAY
     Route: 065
     Dates: start: 20241125
  2. DICLOFLEX [Concomitant]
     Indication: Nephrolithiasis
     Dates: start: 20241125

REACTIONS (1)
  - Nasal congestion [Not Recovered/Not Resolved]

NARRATIVE: CASE EVENT DATE: 20241201
